FAERS Safety Report 4508561-9 (Version None)
Quarter: 2004Q4

REPORT INFORMATION
  Report Type: 
  Country: None (occurrence: None)
  Receive Date: 20041123
  Receipt Date: 20040401
  Transmission Date: 20050328
  Serious: No
  Sender: FDA-Public Use
  Company Number: US-GLAXOSMITHKLINE-A0505578A

PATIENT
  Age: 66 Year
  Sex: Female

DRUGS (4)
  1. WELLBUTRIN SR [Suspect]
     Indication: DEPRESSION
     Dosage: 150MG TWICE PER DAY
     Route: 048
     Dates: start: 19960101
  2. XANAX [Concomitant]
  3. COUMADIN [Concomitant]
  4. COZAAR [Concomitant]

REACTIONS (1)
  - WEIGHT DECREASED [None]
